FAERS Safety Report 17675219 (Version 2)
Quarter: 2020Q2

REPORT INFORMATION
  Report Type: Spontaneous
  Country: US (occurrence: US)
  Receive Date: 20200416
  Receipt Date: 20200512
  Transmission Date: 20200714
  Serious: Yes (Hospitalization, Other)
  Sender: FDA-Public Use
  Company Number: US-GLAXOSMITHKLINE-US2020AMR065505

PATIENT
  Age: 72 Year
  Sex: Female
  Weight: 70.9 kg

DRUGS (1)
  1. BREO ELLIPTA [Suspect]
     Active Substance: FLUTICASONE FUROATE\VILANTEROL TRIFENATATE
     Indication: PRODUCT USED FOR UNKNOWN INDICATION
     Dosage: UNK
     Route: 065

REACTIONS (8)
  - Emphysema [Unknown]
  - Breast cancer [Unknown]
  - Hypoxia [Unknown]
  - Pneumothorax [Unknown]
  - Respiratory failure [Unknown]
  - Hospitalisation [Unknown]
  - Metastases to lung [Unknown]
  - Pleural effusion [Unknown]

NARRATIVE: CASE EVENT DATE: 2013
